FAERS Safety Report 7131884-4 (Version None)
Quarter: 2010Q4

REPORT INFORMATION
  Report Type: 
  Country: None (occurrence: None)
  Receive Date: 20101202
  Receipt Date: 20101118
  Transmission Date: 20110411
  Serious: Yes (Hospitalization)
  Sender: FDA-Public Use
  Company Number: NL-CELGENEUS-114-20785-10112115

PATIENT
  Sex: Male
  Weight: 109 kg

DRUGS (8)
  1. THALIDOMIDE [Suspect]
     Indication: MULTIPLE MYELOMA
     Route: 048
     Dates: start: 20101108
  2. MELPHALAN HYDROCHLORIDE [Suspect]
     Indication: MULTIPLE MYELOMA
     Route: 048
     Dates: start: 20100809
  3. PREDNISONE [Suspect]
     Indication: MULTIPLE MYELOMA
     Route: 048
     Dates: start: 20100811
  4. APD [Concomitant]
     Indication: MULTIPLE MYELOMA
     Route: 051
     Dates: start: 20100802
  5. ASPIRIN [Concomitant]
     Indication: PROPHYLAXIS
     Route: 048
     Dates: start: 20100802
  6. MOVICOLON [Concomitant]
     Route: 048
     Dates: start: 20100831
  7. NEULASTA [Concomitant]
     Route: 058
     Dates: start: 20100917, end: 20101015
  8. CARBASALATE CALCIUM [Concomitant]
     Route: 048

REACTIONS (1)
  - PULMONARY ARTERIAL HYPERTENSION [None]
